FAERS Safety Report 6673431-7 (Version None)
Quarter: 2010Q2

REPORT INFORMATION
  Report Type: 
  Country: None (occurrence: None)
  Receive Date: 20100408
  Receipt Date: 20100405
  Transmission Date: 20101027
  Serious: Yes (Other)
  Sender: FDA-Public Use
  Company Number: US-PFIZER INC-2010040672

PATIENT
  Sex: Female

DRUGS (1)
  1. LIPITOR [Suspect]
     Dosage: UNK

REACTIONS (5)
  - ABDOMINAL DISCOMFORT [None]
  - ASTHENIA [None]
  - DIARRHOEA [None]
  - LIP SWELLING [None]
  - MALAISE [None]
